FAERS Safety Report 4603595-8 (Version None)
Quarter: 2005Q1

REPORT INFORMATION
  Report Type: 
  Country: None (occurrence: None)
  Receive Date: 20050308
  Receipt Date: 20050222
  Transmission Date: 20050727
  Serious: Yes (Hospitalization)
  Sender: FDA-Public Use
  Company Number: USA-2005-0018985

PATIENT
  Sex: Male

DRUGS (5)
  1. CEFDITOREN PIVOXIL [Suspect]
     Indication: GINGIVITIS
     Dosage: 100 MG, DAILY, ORAL
     Route: 048
     Dates: start: 20050115, end: 20050115
  2. PONTAL (MEFENAMIC ACID) [Concomitant]
  3. FOROCYLE                 (FOSFOMYCIN SODIUM) [Concomitant]
  4. LEVOFLOXACIN [Concomitant]
  5. PL                   (SALICYLAMIDE, PROMETHAZINE METHYLENE DISALICYLAT [Concomitant]

REACTIONS (3)
  - DRUG ERUPTION [None]
  - NASOPHARYNGITIS [None]
  - PYREXIA [None]
